FAERS Safety Report 19358743 (Version 1)
Quarter: 2021Q2

REPORT INFORMATION
  Report Type: Report from Study
  Country: IT (occurrence: IT)
  Receive Date: 20210601
  Receipt Date: 20210601
  Transmission Date: 20210717
  Serious: Yes (Other)
  Sender: FDA-Public Use
  Company Number: IT-TEVA-2021-IT-1916508

PATIENT
  Age: 73 Year
  Sex: Male

DRUGS (3)
  1. MYOCET 50 MG POWDER, DISPERSION AND SOLVENT FOR CONCENTRATE FOR DISPER [Suspect]
     Active Substance: DOXORUBICIN
     Indication: LYMPHOMA
     Dosage: 50MILLIGRAMPOWDER, DISPERSION AND SOLVENT FOR CONCENTRATE FOR DISPER
     Route: 042
     Dates: start: 20210417
  2. PREDNISONE. [Suspect]
     Active Substance: PREDNISONE
     Indication: LYMPHOMA
     Dosage: 25MILLIGRAM
     Route: 048
     Dates: start: 20210417
  3. VINCRISTINA TEVA ITALIA 1 MG/ML SOLUZIONE INIETTABILE [Suspect]
     Active Substance: VINCRISTINE SULFATE
     Indication: LYMPHOMA
     Dosage: 1MILLIGRAM
     Route: 042
     Dates: start: 20210417

REACTIONS (2)
  - Neutropenia [Recovering/Resolving]
  - Thrombocytopenia [Recovering/Resolving]

NARRATIVE: CASE EVENT DATE: 20210503
